FAERS Safety Report 9805934 (Version 17)
Quarter: 2020Q1

REPORT INFORMATION
  Report Type: Report from Study
  Country: CA (occurrence: CA)
  Receive Date: 20140109
  Receipt Date: 20200310
  Transmission Date: 20200409
  Serious: Yes (Hospitalization, Other)
  Sender: FDA-Public Use
  Company Number: PHHY2013CA025000

PATIENT
  Age: 61 Year
  Sex: Female

DRUGS (12)
  1. PANTOPRAZOLE [Concomitant]
     Active Substance: PANTOPRAZOLE
     Indication: PRODUCT USED FOR UNKNOWN INDICATION
     Route: 065
  2. TASIGNA [Suspect]
     Active Substance: NILOTINIB
     Indication: CHRONIC MYELOID LEUKAEMIA
     Dosage: 300 MG, QD
     Route: 048
     Dates: start: 20130311
  3. ASPIRIN. [Concomitant]
     Active Substance: ASPIRIN
     Indication: PRODUCT USED FOR UNKNOWN INDICATION
     Route: 065
  4. ASA [Concomitant]
     Active Substance: ASPIRIN
     Indication: PRODUCT USED FOR UNKNOWN INDICATION
     Route: 065
  5. TASIGNA [Suspect]
     Active Substance: NILOTINIB
     Dosage: 300 MG, QD
     Route: 048
  6. TASIGNA [Suspect]
     Active Substance: NILOTINIB
     Dosage: 300 MG, BID (STOPPDED 2 MONTHS AGO)
     Route: 048
  7. TASIGNA [Suspect]
     Active Substance: NILOTINIB
     Dosage: 300 MG, BID
     Route: 048
     Dates: start: 201607
  8. SIMVASTATIN. [Concomitant]
     Active Substance: SIMVASTATIN
     Indication: BLOOD CHOLESTEROL INCREASED
     Route: 065
  9. TASIGNA [Suspect]
     Active Substance: NILOTINIB
     Dosage: 150 MG, BID
     Route: 048
  10. TASIGNA [Suspect]
     Active Substance: NILOTINIB
     Dosage: 100 MG, QD
     Route: 048
  11. SERTRALINE [Concomitant]
     Active Substance: SERTRALINE HYDROCHLORIDE
     Indication: PRODUCT USED FOR UNKNOWN INDICATION
     Dosage: 25 MG, QD
     Route: 065
  12. SLEEP AID [Concomitant]
     Indication: PRODUCT USED FOR UNKNOWN INDICATION
     Route: 065

REACTIONS (61)
  - Dehydration [Recovering/Resolving]
  - Liver abscess [Unknown]
  - Skin burning sensation [Unknown]
  - White blood cell count increased [Recovered/Resolved]
  - Diverticulitis [Unknown]
  - White blood cell count increased [Recovering/Resolving]
  - Stress [Unknown]
  - Skin disorder [Unknown]
  - Conjunctivitis [Unknown]
  - Pruritus [Recovering/Resolving]
  - Weight decreased [Unknown]
  - Sinusitis [Unknown]
  - Erythema [Unknown]
  - Pain in extremity [Unknown]
  - Vomiting [Unknown]
  - Influenza [Recovered/Resolved]
  - Fatigue [Unknown]
  - Inflammation [Unknown]
  - Viral infection [Unknown]
  - Gastrointestinal pain [Unknown]
  - Nausea [Recovering/Resolving]
  - Influenza [Recovering/Resolving]
  - Discomfort [Recovering/Resolving]
  - Tongue disorder [Unknown]
  - Palatal disorder [Unknown]
  - Emotional disorder [Unknown]
  - Ear infection [Unknown]
  - Nasopharyngitis [Unknown]
  - Acne [Unknown]
  - Insomnia [Unknown]
  - Diarrhoea [Unknown]
  - Pulmonary oedema [Unknown]
  - Body temperature increased [Unknown]
  - Vulvovaginal dryness [Unknown]
  - Psoriasis [Unknown]
  - Skin papilloma [Unknown]
  - Blood glucose increased [Recovering/Resolving]
  - Oral pain [Unknown]
  - Dry skin [Unknown]
  - Faeces soft [Unknown]
  - Pain [Unknown]
  - Taste disorder [Unknown]
  - Bronchitis [Unknown]
  - Anaemia [Recovered/Resolved]
  - Headache [Unknown]
  - Anxiety [Unknown]
  - Malaise [Unknown]
  - Hair texture abnormal [Unknown]
  - Hypoaesthesia [Unknown]
  - Alopecia [Recovering/Resolving]
  - Platelet count decreased [Recovered/Resolved]
  - Hypoglycaemia [Unknown]
  - Gastrointestinal inflammation [Unknown]
  - Clostridium difficile colitis [Recovering/Resolving]
  - Diarrhoea [Recovered/Resolved]
  - Chronic myeloid leukaemia recurrent [Unknown]
  - Memory impairment [Unknown]
  - Oropharyngeal pain [Unknown]
  - Abdominal pain upper [Recovering/Resolving]
  - Dry mouth [Recovering/Resolving]
  - Asthenia [Not Recovered/Not Resolved]

NARRATIVE: CASE EVENT DATE: 201303
